FAERS Safety Report 6277743-0 (Version None)
Quarter: 2009Q3

REPORT INFORMATION
  Report Type: 
  Country: None (occurrence: None)
  Receive Date: 20090722
  Receipt Date: 20090720
  Transmission Date: 20100115
  Serious: Yes (Death, Hospitalization)
  Sender: FDA-Public Use
  Company Number: B0580648A

PATIENT
  Sex: Male

DRUGS (1)
  1. LAMICTAL [Suspect]
     Route: 048
     Dates: start: 20090318, end: 20090427

REACTIONS (31)
  - ABDOMINAL PAIN [None]
  - ANURIA [None]
  - CHOLESTASIS [None]
  - DISSEMINATED INTRAVASCULAR COAGULATION [None]
  - DRUG RASH WITH EOSINOPHILIA AND SYSTEMIC SYMPTOMS [None]
  - EOSINOPHILIA [None]
  - GENERAL PHYSICAL HEALTH DETERIORATION [None]
  - HAEMODYNAMIC INSTABILITY [None]
  - HEPATOCELLULAR INJURY [None]
  - HYPOALBUMINAEMIA [None]
  - HYPOPROTEINAEMIA [None]
  - HYPOXIA [None]
  - IMMUNE SYSTEM DISORDER [None]
  - JAUNDICE [None]
  - LYMPHADENOPATHY [None]
  - PANCREATITIS ACUTE [None]
  - PLEURAL EFFUSION [None]
  - POLYSEROSITIS [None]
  - PROTHROMBIN LEVEL DECREASED [None]
  - PYREXIA [None]
  - RASH PAPULAR [None]
  - RASH PRURITIC [None]
  - RENAL FAILURE [None]
  - SEPTIC SHOCK [None]
  - STAPHYLOCOCCAL INFECTION [None]
  - TACHYPNOEA [None]
  - THROMBOCYTOPENIA [None]
  - TOXIC SKIN ERUPTION [None]
  - UREA URINE INCREASED [None]
  - URINARY TRACT INFECTION [None]
  - URINE POTASSIUM INCREASED [None]
